FAERS Safety Report 9017815 (Version 4)
Quarter: 2013Q3

REPORT INFORMATION
  Report Type: Report from Study
  Country: CA (occurrence: CA)
  Receive Date: 20130118
  Receipt Date: 20130903
  Transmission Date: 20140515
  Serious: Yes (Other)
  Sender: FDA-Public Use
  Company Number: CA-BRISTOL-MYERS SQUIBB COMPANY-16572794

PATIENT
  Age: 80 Year
  Sex: Female

DRUGS (17)
  1. APIXABAN [Suspect]
     Indication: THROMBOSIS PROPHYLAXIS
     Dosage: INTERR 30MAR-4APR12; INTERR 29APR12; INTERR 8AUG12
     Route: 048
     Dates: start: 20100813, end: 20130207
  2. AMLODIPINE [Concomitant]
     Dosage: STARTED PRIOR TO STUDY
  3. AVAPRO [Concomitant]
     Dosage: STARTED PRIOR TO STUDY
  4. METOPROLOL [Concomitant]
     Dosage: STARTED PRIOR TO STUDY
  5. ROBAXACET [Concomitant]
     Dates: start: 201111
  6. TYLENOL [Concomitant]
     Dosage: STARTED PRIOR TO STUDY
  7. LASIX [Concomitant]
     Dosage: STARTED PRIOR TO STUDY
  8. DEMEROL [Concomitant]
     Dates: start: 20110225
  9. SALBUTAMOL INHALER [Concomitant]
     Dates: start: 20110105
  10. OMEPRAZOLE [Concomitant]
  11. IRBESARTAN [Concomitant]
  12. FUROSEMIDE [Concomitant]
  13. AMLODIPINE [Concomitant]
  14. CALCIUM + MAGNESIUM + ZINC [Concomitant]
  15. VITAMIN D [Concomitant]
  16. BIAXIN [Concomitant]
  17. NITROL [Concomitant]

REACTIONS (5)
  - B-cell lymphoma [Not Recovered/Not Resolved]
  - Hepatic cirrhosis [Not Recovered/Not Resolved]
  - Haemorrhage [Unknown]
  - Rectal haemorrhage [Unknown]
  - Ascites [Not Recovered/Not Resolved]
